FAERS Safety Report 21926052 (Version 1)
Quarter: 2023Q1

REPORT INFORMATION
  Report Type: Spontaneous
  Country: US (occurrence: None)
  Receive Date: 20230127
  Receipt Date: 20230127
  Transmission Date: 20230417
  Serious: No
  Sender: FDA-Public Use
  Company Number: None

PATIENT
  Age: 62 Year
  Sex: Female

DRUGS (3)
  1. ENBREL [Suspect]
     Active Substance: ETANERCEPT
     Indication: Skin candida
     Dosage: INJECT 50MG SUBCUTANEOUSLY TWO TIMES A WEEK  72- 96 HOURS APART FOR 3 MONTHS   AS DIRECTED
     Route: 058
     Dates: start: 202109
  2. ENBREL [Suspect]
     Active Substance: ETANERCEPT
     Indication: Psoriasis
  3. ENBREL [Suspect]
     Active Substance: ETANERCEPT
     Indication: Nail candida

REACTIONS (3)
  - Nasopharyngitis [None]
  - Influenza [None]
  - COVID-19 [None]
